FAERS Safety Report 8244760-0 (Version None)
Quarter: 2012Q1

REPORT INFORMATION
  Report Type: 
  Country: None (occurrence: None)
  Receive Date: 20120329
  Receipt Date: 20110321
  Transmission Date: 20120608
  Serious: No
  Sender: FDA-Public Use
  Company Number: US-MYLANLABS-2011S1006050

PATIENT
  Age: 39 Year
  Sex: Female

DRUGS (3)
  1. FENTANYL-100 [Suspect]
     Indication: ABDOMINAL PAIN
     Dosage: CHANGED Q72H
     Route: 062
     Dates: start: 20110101
  2. IBUPROFEN [Concomitant]
  3. FENTANYL-100 [Suspect]
     Indication: ARTHRITIS
     Dosage: CHANGED Q72H
     Route: 062
     Dates: start: 20110101

REACTIONS (3)
  - DRUG WITHDRAWAL SYNDROME [None]
  - INCORRECT DRUG ADMINISTRATION DURATION [None]
  - FEELING ABNORMAL [None]
